FAERS Safety Report 17408161 (Version 2)
Quarter: 2020Q1

REPORT INFORMATION
  Report Type: Spontaneous
  Country: BE (occurrence: BE)
  Receive Date: 20200212
  Receipt Date: 20200309
  Transmission Date: 20200409
  Serious: Yes (Hospitalization, Disabling, Other)
  Sender: FDA-Public Use
  Company Number: BE-009507513-2002BEL004191

PATIENT
  Age: 68 Year
  Sex: Male
  Weight: 65.5 kg

DRUGS (5)
  1. SPIRIVA [Concomitant]
     Active Substance: TIOTROPIUM BROMIDE MONOHYDRATE
     Dosage: UNK
  2. SERETIDE [Concomitant]
     Active Substance: FLUTICASONE PROPIONATE\SALMETEROL XINAFOATE
  3. KEYTRUDA [Suspect]
     Active Substance: PEMBROLIZUMAB
     Indication: LUNG CANCER METASTATIC
     Dosage: 200 MILLIGRAM, Q3W (27 CYCLES)
     Route: 042
     Dates: start: 20180208, end: 20190808
  4. KEYTRUDA [Suspect]
     Active Substance: PEMBROLIZUMAB
     Dosage: 200 MILLIGRAM, Q3W
     Route: 042
     Dates: start: 20191204, end: 20191226
  5. ASAFLOW [Concomitant]
     Active Substance: ASPIRIN
     Dosage: UNK

REACTIONS (7)
  - Arthritis [Unknown]
  - Corneal perforation [Not Recovered/Not Resolved]
  - Adrenal insufficiency [Unknown]
  - Infection [Unknown]
  - Corneal perforation [Not Recovered/Not Resolved]
  - Adrenal insufficiency [Recovering/Resolving]
  - Arthritis [Recovered/Resolved]

NARRATIVE: CASE EVENT DATE: 20190829
